FAERS Safety Report 6475564-7 (Version None)
Quarter: 2009Q4

REPORT INFORMATION
  Report Type: 
  Country: None (occurrence: None)
  Receive Date: 20091204
  Receipt Date: 20091124
  Transmission Date: 20100525
  Serious: Yes (Life-Threatening, Other)
  Sender: FDA-Public Use
  Company Number: JP-PFIZER INC-2009286455

PATIENT
  Age: 78 Year
  Sex: Female
  Weight: 49 kg

DRUGS (3)
  1. CARDENALIN [Suspect]
     Indication: HYPERTENSION
     Dosage: 0.5 MG, 1X/DAY
     Route: 048
     Dates: start: 20060203, end: 20091017
  2. BLOPRESS [Suspect]
     Indication: HYPERTENSION
     Dosage: 8 MG, 1X/DAY
     Route: 048
     Dates: start: 20051014, end: 20091017
  3. CONIEL [Suspect]
     Indication: HYPERTENSION
     Dosage: 2X/DAY, EVERY DAY
     Route: 048
     Dates: start: 20010821, end: 20091017

REACTIONS (1)
  - PANCYTOPENIA [None]
